FAERS Safety Report 5066550-2 (Version None)
Quarter: 2006Q3

REPORT INFORMATION
  Report Type: 
  Country: None (occurrence: None)
  Receive Date: 20060801
  Receipt Date: 20060508
  Transmission Date: 20061208
  Serious: Yes (Life-Threatening, Disabling)
  Sender: FDA-Public Use
  Company Number: US-BAYER-200613453BWH

PATIENT
  Age: 70 Year
  Sex: Female

DRUGS (6)
  1. NEXAVAR [Suspect]
     Indication: RENAL CELL CARCINOMA STAGE UNSPECIFIED
     Dosage: TOTAL DAILY DOSE: 800 MG  UNIT DOSE: 200 MG
     Route: 048
     Dates: start: 20060416, end: 20060617
  2. NEXAVAR [Suspect]
     Dosage: TOTAL DAILY DOSE: 400 MG  UNIT DOSE: 200 MG
     Route: 048
     Dates: start: 20060626, end: 20060712
  3. NEXAVAR [Suspect]
     Dosage: TOTAL DAILY DOSE: 200 MG  UNIT DOSE: 200 MG
     Route: 048
     Dates: start: 20060716
  4. PINDOLOL [Concomitant]
     Indication: HYPERTENSION
  5. PROTONIX [Concomitant]
  6. THALIDOMIDE THERAPY [Concomitant]
     Dates: start: 20050801, end: 20060301

REACTIONS (13)
  - ALOPECIA [None]
  - BLISTER [None]
  - CONSTIPATION [None]
  - DECREASED APPETITE [None]
  - DYSGEUSIA [None]
  - DYSPHONIA [None]
  - DYSURIA [None]
  - ERYTHEMA [None]
  - HYPERTENSION [None]
  - PRURITUS [None]
  - STOMATITIS [None]
  - WEIGHT DECREASED [None]
  - WHEELCHAIR USER [None]
